FAERS Safety Report 8127355 (Version 4)
Quarter: 2014Q4

REPORT INFORMATION
  Report Type: Spontaneous
  Country: US (occurrence: US)
  Receive Date: 20110908
  Receipt Date: 20141204
  Transmission Date: 20150529
  Serious: Yes (Hospitalization)
  Sender: FDA-Public Use
  Company Number: US-ASTRAZENECA-2011SE52015

PATIENT
  Age: 58 Year
  Sex: Male
  Weight: 85.3 kg

DRUGS (32)
  1. SEROQUEL XR [Suspect]
     Active Substance: QUETIAPINE FUMARATE
     Indication: BIPOLAR DISORDER
     Route: 048
  2. CATAPRES [Concomitant]
     Active Substance: CLONIDINE HYDROCHLORIDE
     Indication: HYPERTENSION
     Route: 048
  3. CARDIZEM LA [Concomitant]
     Active Substance: DILTIAZEM HYDROCHLORIDE
  4. SEROQUEL XR [Suspect]
     Active Substance: QUETIAPINE FUMARATE
     Indication: BIPOLAR DISORDER
     Route: 048
  5. DILTIAZEM HYDROCHLORIDE EXTENDED RELEASE [Concomitant]
     Active Substance: DILTIAZEM HYDROCHLORIDE
     Route: 048
  6. BUSPIRONE [Concomitant]
     Active Substance: BUSPIRONE HYDROCHLORIDE
  7. SEROQUEL XR [Suspect]
     Active Substance: QUETIAPINE FUMARATE
     Indication: BIPOLAR DISORDER
     Route: 048
     Dates: start: 2008
  8. LISINOPRIL. [Suspect]
     Active Substance: LISINOPRIL
     Indication: HYPERTENSION
     Dosage: 20/12.5, BID
     Route: 048
  9. ZEN-X [Concomitant]
     Indication: GASTROOESOPHAGEAL REFLUX DISEASE
     Route: 048
  10. CELEXIL [Concomitant]
     Indication: DEPRESSION
     Route: 048
  11. DEPO-TESTOSTERONE [Concomitant]
     Active Substance: TESTOSTERONE CYPIONATE
     Dosage: 200 MG/ML EVERY MONTH
  12. TRAZODONE [Concomitant]
     Active Substance: TRAZODONE HYDROCHLORIDE
     Dosage: AT NIGHT
  13. SEROQUEL XR [Suspect]
     Active Substance: QUETIAPINE FUMARATE
     Indication: BIPOLAR DISORDER
     Route: 048
  14. DEPAKOTE [Suspect]
     Active Substance: DIVALPROEX SODIUM
     Dosage: 250 MG IN THE MORNING AND 500 MG AT NIGHT
     Route: 065
     Dates: start: 201009
  15. BARBUXIXN [Concomitant]
     Indication: ANXIETY
     Route: 048
  16. MOBIC [Concomitant]
     Active Substance: MELOXICAM
  17. ZESTORETIC [Concomitant]
     Active Substance: HYDROCHLOROTHIAZIDE\LISINOPRIL
     Dosage: 20/12.5 MG TWO TIMES A DAY
  18. FENOFIBRATE. [Concomitant]
     Active Substance: FENOFIBRATE
     Indication: BLOOD TRIGLYCERIDES ABNORMAL
     Route: 048
  19. TRAZADONE HCL [Concomitant]
  20. CATAPRES [Concomitant]
     Active Substance: CLONIDINE HYDROCHLORIDE
     Indication: HYPERTENSION
     Route: 048
  21. CARDIZINE [Concomitant]
     Indication: HYPERTENSION
     Route: 048
  22. HALOPERIDOL. [Concomitant]
     Active Substance: HALOPERIDOL
  23. SEROQUEL XR [Suspect]
     Active Substance: QUETIAPINE FUMARATE
     Indication: BIPOLAR DISORDER
     Route: 048
  24. ZELEXAL [Concomitant]
     Indication: DEPRESSION
     Route: 048
  25. HYDROXYZINE [Concomitant]
     Active Substance: HYDROXYZINE\HYDROXYZINE HYDROCHLORIDE
  26. ESCITALOPRAM [Concomitant]
     Active Substance: ESCITALOPRAM OXALATE
  27. XANAX [Suspect]
     Active Substance: ALPRAZOLAM
     Indication: NERVOUSNESS
     Dosage: 0.5 MG TID PRN
     Route: 065
  28. ZELEXAL [Concomitant]
     Indication: DEPRESSION
     Route: 048
  29. LAPHARMAKRYL [Concomitant]
     Dosage: 20/12 MG DAILY
     Route: 048
  30. HALOPERIDOL. [Concomitant]
     Active Substance: HALOPERIDOL
  31. SEROQUEL XR [Suspect]
     Active Substance: QUETIAPINE FUMARATE
     Indication: BIPOLAR DISORDER
     Dosage: 50 MG IN THE MORNING AND 100 MG AT NIGHT
     Route: 048
  32. GABAPENTIN. [Concomitant]
     Active Substance: GABAPENTIN
     Route: 048

REACTIONS (16)
  - Borderline personality disorder [Unknown]
  - Anxiety disorder [Unknown]
  - Mental disorder [Recovering/Resolving]
  - Dyspnoea [Unknown]
  - Abdominal discomfort [Unknown]
  - Depression [Unknown]
  - Drug dose omission [Unknown]
  - Blood pressure increased [Unknown]
  - Weight decreased [Unknown]
  - Panic attack [Not Recovered/Not Resolved]
  - Heart rate increased [Unknown]
  - Hypogonadism [Unknown]
  - Diarrhoea [Unknown]
  - Hypertension [Unknown]
  - Hyperlipidaemia [Unknown]
  - Intentional product misuse [Unknown]

NARRATIVE: CASE EVENT DATE: 2008
